FAERS Safety Report 20562495 (Version 1)
Quarter: 2022Q1

REPORT INFORMATION
  Report Type: Spontaneous
  Country: RU (occurrence: RU)
  Receive Date: 20220307
  Receipt Date: 20220307
  Transmission Date: 20220423
  Serious: Yes (Other)
  Sender: FDA-Public Use
  Company Number: RU-ABBVIE-22K-251-4301658-00

PATIENT
  Sex: Male

DRUGS (2)
  1. VALPROIC ACID [Suspect]
     Active Substance: VALPROIC ACID
     Indication: Epilepsy
     Route: 065
     Dates: start: 2014
  2. VALPROIC ACID [Suspect]
     Active Substance: VALPROIC ACID
     Route: 065

REACTIONS (6)
  - Product counterfeit [Unknown]
  - Seizure [Unknown]
  - Drug ineffective [Unknown]
  - Muscle fatigue [Unknown]
  - Weight increased [Unknown]
  - Tremor [Unknown]
